FAERS Safety Report 10477425 (Version 3)
Quarter: 2017Q2

REPORT INFORMATION
  Report Type: Report from Study
  Country: US (occurrence: US)
  Receive Date: 20140926
  Receipt Date: 20170428
  Transmission Date: 20170829
  Serious: Yes (Other)
  Sender: FDA-Public Use
  Company Number: US-SA-2014SA129229

PATIENT
  Age: 44 Year
  Sex: Male

DRUGS (3)
  1. ZESTRIL [Concomitant]
     Active Substance: LISINOPRIL
     Indication: RENAL DISORDER
     Dates: start: 2001
  2. FABRAZYME [Suspect]
     Active Substance: AGALSIDASE BETA
     Indication: FABRY^S DISEASE
     Route: 041
     Dates: start: 20031016
  3. VERAPAMIL [Concomitant]
     Active Substance: VERAPAMIL HYDROCHLORIDE
     Indication: MIGRAINE
     Dates: start: 1994

REACTIONS (5)
  - Transient ischaemic attack [Recovering/Resolving]
  - Pruritus [Not Recovered/Not Resolved]
  - Cerebrovascular accident [Recovering/Resolving]
  - Renal failure [Not Recovered/Not Resolved]
  - Oedema peripheral [Not Recovered/Not Resolved]

NARRATIVE: CASE EVENT DATE: 201608
